FAERS Safety Report 9175647 (Version 1)
Quarter: 2012Q4

REPORT INFORMATION
  Report Type: 
  Country: US (occurrence: US)
  Receive Date: 20120913
  Receipt Date: 20120913
  Transmission Date: 20130627
  Serious: Yes (Other)
  Sender: FDA-Public Use
  Company Number: US-009507513-1209USA003713

PATIENT

DRUGS (13)
  1. ISENTRESS [Suspect]
     Route: 048
  2. INTELENCE [Suspect]
     Route: 065
  3. LOPERAMIDE HYDROCHLORIDE [Suspect]
     Route: 065
  4. TRUVADA [Suspect]
     Route: 065
  5. NORVIR [Suspect]
     Route: 065
  6. PREZISTA [Suspect]
     Route: 065
  7. HYDROCHLOROTHIAZIDE [Suspect]
     Route: 065
  8. CITALOPRAM [Suspect]
     Route: 065
  9. LISINOPRIL [Suspect]
     Route: 065
  10. PRAVASTATIN SODIUM [Suspect]
     Route: 065
  11. OMEPRAZOLE [Suspect]
     Route: 065
  12. VITAMINS (UNSPECIFIED) [Concomitant]
     Route: 065
  13. OMEGA-3 [Concomitant]
     Route: 065

REACTIONS (11)
  - Hypertension [Unknown]
  - Diarrhoea [Unknown]
  - Neuropathy peripheral [Unknown]
  - Nausea [Unknown]
  - Lipids increased [Unknown]
  - Depressive symptom [Unknown]
  - Abdominal pain [Unknown]
  - Sleep disorder [Unknown]
  - Asthenia [Unknown]
  - Lipodystrophy acquired [Unknown]
  - Fatigue [Unknown]
